FAERS Safety Report 16198215 (Version 1)
Quarter: 2019Q2

REPORT INFORMATION
  Report Type: Spontaneous
  Country: GB (occurrence: GB)
  Receive Date: 20190415
  Receipt Date: 20190415
  Transmission Date: 20190711
  Serious: Yes (Other)
  Sender: FDA-Public Use
  Company Number: GB-JNJFOC-20190341773

PATIENT

DRUGS (1)
  1. XARELTO [Suspect]
     Active Substance: RIVAROXABAN
     Indication: PRODUCT USED FOR UNKNOWN INDICATION
     Route: 048

REACTIONS (24)
  - Haemarthrosis [Unknown]
  - Dizziness [Unknown]
  - Gastrointestinal haemorrhage [Unknown]
  - Haemoglobin decreased [Unknown]
  - Tooth extraction [Unknown]
  - Perirenal haematoma [Unknown]
  - Dyspepsia [Unknown]
  - Haematoma [Unknown]
  - Alopecia [Unknown]
  - Myalgia [Unknown]
  - Fall [Unknown]
  - Conjunctival haemorrhage [Unknown]
  - Epistaxis [Unknown]
  - Haematuria [Unknown]
  - Gingival bleeding [Unknown]
  - Rash [Unknown]
  - Diarrhoea [Unknown]
  - Malaise [Unknown]
  - Haemorrhage intracranial [Unknown]
  - Lower gastrointestinal haemorrhage [Unknown]
  - Subdural haematoma [Unknown]
  - Embolic stroke [Unknown]
  - Pruritus [Unknown]
  - Contusion [Unknown]
